FAERS Safety Report 14116523 (Version 1)
Quarter: 2017Q4

REPORT INFORMATION
  Report Type: Spontaneous
  Country: US (occurrence: US)
  Receive Date: 20171023
  Receipt Date: 20171023
  Transmission Date: 20180321
  Serious: Yes (Other)
  Sender: FDA-Public Use
  Company Number: US-EMERGENT BIOSOLUTIONS-15BA00042SP

PATIENT
  Age: 74 Year
  Sex: Female

DRUGS (3)
  1. NOVOLOG/HUMULIN INSULIN [Concomitant]
     Indication: TYPE 2 DIABETES MELLITUS
     Dosage: UNK, Q6H
     Route: 058
     Dates: start: 20150423, end: 20150509
  2. BAT [Suspect]
     Active Substance: EQUINE BOTULINUM NEUROTOXIN A/B/C/D/E/F/G IMMUNE FAB2
     Indication: BOTULISM
     Dates: start: 20150423
  3. HEPARIN [Concomitant]
     Active Substance: HEPARIN SODIUM
     Dosage: 5000 IU, Q8H
     Route: 058
     Dates: start: 20150423, end: 20150509

REACTIONS (3)
  - Pulmonary oedema [Recovering/Resolving]
  - Pneumonia aspiration [Recovered/Resolved]
  - Acute myocardial infarction [Recovered/Resolved]

NARRATIVE: CASE EVENT DATE: 20150425
